FAERS Safety Report 24276621 (Version 3)
Quarter: 2024Q3

REPORT INFORMATION
  Report Type: Spontaneous
  Country: JP (occurrence: JP)
  Receive Date: 20240903
  Receipt Date: 20240923
  Transmission Date: 20241017
  Serious: Yes (Hospitalization)
  Sender: ADVANZ PHARMA
  Company Number: JP-ADVANZ PHARMA-202408007108

PATIENT

DRUGS (3)
  1. ZONISAMIDE [Suspect]
     Active Substance: ZONISAMIDE
     Indication: Parkinson^s disease
     Dosage: 50 MG, QD (TRERIEF, ORODISPERSIBLE TABLET)
     Route: 048
  2. ZONISAMIDE [Suspect]
     Active Substance: ZONISAMIDE
     Indication: Parkinsonism
  3. ZONISAMIDE [Suspect]
     Active Substance: ZONISAMIDE
     Indication: Parkinson^s disease
     Dosage: 100 MG, QD (EXCEGRAN)
     Route: 048

REACTIONS (2)
  - Gastrostomy [Recovered/Resolved]
  - Off label use [Unknown]
